FAERS Safety Report 25042347 (Version 3)
Quarter: 2025Q3

REPORT INFORMATION
  Report Type: Report from Study
  Country: EU (occurrence: EU)
  Receive Date: 20250305
  Receipt Date: 20250808
  Transmission Date: 20251020
  Serious: Yes (Hospitalization, Other)
  Sender: PFIZER
  Company Number: EU-BRISTOL-MYERS SQUIBB COMPANY-2025-024691

PATIENT
  Age: 65 Year
  Sex: Female

DRUGS (11)
  1. METHOTREXATE SODIUM [Suspect]
     Active Substance: METHOTREXATE SODIUM
     Dosage: 5 MG, WEEKLY
  2. ORENCIA [Suspect]
     Active Substance: ABATACEPT
     Indication: Rheumatic disorder
     Dosage: 125 MG, WEEKLY
     Route: 058
     Dates: end: 20240825
  3. HYDROXYCHLOROQUINE [Suspect]
     Active Substance: HYDROXYCHLOROQUINE
     Dosage: 343 MG, 1X/DAY
     Dates: end: 202410
  4. ETANERCEPT [Concomitant]
     Active Substance: ETANERCEPT
     Dosage: 50 MG, WEEKLY
     Dates: start: 20240918, end: 20241002
  5. TRUXIMA [Concomitant]
     Active Substance: RITUXIMAB-ABBS
     Dates: start: 20250108
  6. ALENDRONIC ACID [Concomitant]
     Active Substance: ALENDRONIC ACID
  7. BISOPROLOL [Concomitant]
     Active Substance: BISOPROLOL
  8. CANDESARTAN [Concomitant]
     Active Substance: CANDESARTAN
  9. CHOLECALCIFEROL [Concomitant]
     Active Substance: CHOLECALCIFEROL
  10. FOLIC ACID [Concomitant]
     Active Substance: FOLIC ACID
  11. LEVOTHYROXINE [Concomitant]
     Active Substance: LEVOTHYROXINE

REACTIONS (3)
  - Rheumatoid arthritis [Recovered/Resolved]
  - Liver function test increased [Unknown]
  - Gastrointestinal infection [Recovered/Resolved]

NARRATIVE: CASE EVENT DATE: 20240515
